FAERS Safety Report 6702987-0 (Version None)
Quarter: 2010Q2

REPORT INFORMATION
  Report Type: 
  Country: None (occurrence: None)
  Receive Date: 20100429
  Receipt Date: 20100429
  Transmission Date: 20101027
  Serious: Yes (Other)
  Sender: FDA-Public Use
  Company Number: None

PATIENT
  Age: 23 Year
  Sex: Male
  Weight: 106.5953 kg

DRUGS (1)
  1. AFRIN [Suspect]
     Indication: NASOPHARYNGITIS
     Dosage: 1 SPRAY -DILUTED 50% SALINE- 1 EVERY 11 HOURS NASAL
     Route: 045

REACTIONS (5)
  - ANOSMIA [None]
  - DYSGEUSIA [None]
  - FEELING ABNORMAL [None]
  - INFLAMMATION [None]
  - REBOUND EFFECT [None]
